FAERS Safety Report 9401396 (Version 1)
Quarter: 2013Q3

REPORT INFORMATION
  Report Type: Spontaneous
  Country: CN (occurrence: CN)
  Receive Date: 20130715
  Receipt Date: 20130715
  Transmission Date: 20140515
  Serious: Yes (Other)
  Sender: FDA-Public Use
  Company Number: CN-BAXTER-2013BAX026601

PATIENT
  Age: 64 Year
  Sex: Female

DRUGS (2)
  1. 20% MANNITOL INJECTION [Suspect]
     Indication: INTERVERTEBRAL DISC PROTRUSION
     Route: 042
     Dates: start: 20120725, end: 20120725
  2. 20% MANNITOL INJECTION [Suspect]
     Indication: FLUID REPLACEMENT

REACTIONS (1)
  - Pruritus [Recovering/Resolving]
